FAERS Safety Report 6915130-X (Version None)
Quarter: 2010Q3

REPORT INFORMATION
  Report Type: 
  Country: None (occurrence: None)
  Receive Date: 20100805
  Receipt Date: 20100805
  Transmission Date: 20110219
  Serious: Yes (Life-Threatening, Hospitalization, Disabling, Congenital Anomaly, Other)
  Sender: FDA-Public Use
  Company Number: None

PATIENT
  Age: 40 Year
  Sex: Female
  Weight: 68.0396 kg

DRUGS (2)
  1. PROZAC [Suspect]
     Dosage: 1 CAPSULE MORNING
     Dates: start: 19970720, end: 20100101
  2. CLONAZEPAM [Suspect]
     Dosage: HALF A TABLET NIGHT

REACTIONS (2)
  - BRAIN INJURY [None]
  - URINARY TRACT INFECTION [None]
